FAERS Safety Report 20644959 (Version 1)
Quarter: 2022Q1

REPORT INFORMATION
  Report Type: Spontaneous
  Country: US (occurrence: None)
  Receive Date: 20220328
  Receipt Date: 20220328
  Transmission Date: 20220424
  Serious: Yes (Hospitalization)
  Sender: FDA-Public Use
  Company Number: None

PATIENT
  Age: 90 Year
  Sex: Male
  Weight: 83.25 kg

DRUGS (2)
  1. MYRBETRIQ [Suspect]
     Active Substance: MIRABEGRON
     Indication: Hypertonic bladder
     Dosage: OTHER QUANTITY : 1 TABLET(S);?FREQUENCY : AT BEDTIME;?
     Route: 048
     Dates: start: 20220121, end: 20220122
  2. OXYBUTYNIN [Suspect]
     Active Substance: OXYBUTYNIN

REACTIONS (8)
  - Headache [None]
  - Dizziness [None]
  - Vertigo [None]
  - Dysstasia [None]
  - Heart rate increased [None]
  - Vision blurred [None]
  - Atrial fibrillation [None]
  - Blood potassium decreased [None]

NARRATIVE: CASE EVENT DATE: 20220122
